FAERS Safety Report 9467579 (Version 2)
Quarter: 2013Q3

REPORT INFORMATION
  Report Type: Report from Study
  Country: GB (occurrence: GB)
  Receive Date: 20130821
  Receipt Date: 20130821
  Transmission Date: 20140515
  Serious: Yes (Hospitalization, Other)
  Sender: FDA-Public Use
  Company Number: GB-BAYER-2011-010601

PATIENT
  Age: 59 Year
  Sex: Male

DRUGS (11)
  1. ALPHARADIN [Suspect]
     Indication: HORMONE-REFRACTORY PROSTATE CANCER
     Dosage: 50 KBQ/KG B.W, Q1MON
     Route: 042
     Dates: start: 20100901, end: 20101027
  2. ALPHARADIN [Suspect]
     Indication: METASTASES TO BONE
  3. PARACETAMOL [Concomitant]
     Dosage: DAILY DOSE 3000 MG
     Route: 048
     Dates: start: 201004
  4. CLEXANE [Concomitant]
     Dosage: DAILY DOSE 40 MG
     Route: 058
     Dates: start: 20090813
  5. FERROUS SULPHATE [Concomitant]
     Dosage: DAILY DOSE 600 MG
     Route: 048
     Dates: start: 2000
  6. SIMVASTATIN [Concomitant]
     Dosage: DAILY DOSE 40 MG
     Route: 048
     Dates: start: 2005
  7. LOPERAMIDE [Concomitant]
     Dosage: DAILY DOSE 2 MG
     Route: 048
     Dates: start: 200910
  8. ZOLADEX [Concomitant]
     Dosage: DAILY DOSE 10.8 MG
     Route: 058
     Dates: start: 200311
  9. CELECOXIB [Concomitant]
     Dosage: DAILY DOSE 100 MG
     Route: 048
     Dates: start: 201004
  10. ZOLEDRONIC ACID [Concomitant]
     Dosage: DAILY DOSE 4 MG
     Route: 042
     Dates: start: 201008
  11. PANTOPRAZOLE [Concomitant]
     Dosage: DAILY DOSE 40 MG
     Route: 048
     Dates: start: 2000

REACTIONS (1)
  - Anaemia [Recovered/Resolved]
